FAERS Safety Report 14261206 (Version 7)
Quarter: 2025Q2

REPORT INFORMATION
  Report Type: Spontaneous
  Country: IT (occurrence: IT)
  Receive Date: 20171208
  Receipt Date: 20250426
  Transmission Date: 20250717
  Serious: Yes (Other)
  Sender: AUROBINDO
  Company Number: IT-AUROBINDO-AUR-APL-2017-44148

PATIENT
  Age: 21 Year
  Sex: Female

DRUGS (9)
  1. ARIPIPRAZOLE [Interacting]
     Active Substance: ARIPIPRAZOLE
     Indication: Tourette^s disorder
     Dosage: 7.5 MG, ONCE A DAY(INCREASING DOSAGE UP TO 7.5 MG DAILY )
     Route: 065
  2. ARIPIPRAZOLE [Interacting]
     Active Substance: ARIPIPRAZOLE
     Dosage: UNK UNK, ONCE A DAY
     Route: 065
  3. ARIPIPRAZOLE [Interacting]
     Active Substance: ARIPIPRAZOLE
     Dosage: 2.5 MILLIGRAM, ONCE A DAY
     Route: 065
  4. PAROXETINE [Suspect]
     Active Substance: PAROXETINE
     Indication: Tourette^s disorder
     Dosage: 10 MILLIGRAM, ONCE A DAY
     Route: 065
  5. SERTRALINE [Suspect]
     Active Substance: SERTRALINE HYDROCHLORIDE
     Indication: Tourette^s disorder
     Dosage: 50 MILLIGRAM, ONCE A DAY
     Route: 065
  6. FLUOXETINE [Suspect]
     Active Substance: FLUOXETINE HYDROCHLORIDE
     Indication: Tourette^s disorder
     Route: 065
  7. FLUOXETINE [Suspect]
     Active Substance: FLUOXETINE HYDROCHLORIDE
     Indication: Obsessive-compulsive symptom
  8. FLUOXETINE [Suspect]
     Active Substance: FLUOXETINE HYDROCHLORIDE
     Indication: Self-destructive behaviour
  9. TIAPRIDE HYDROCHLORIDE [Suspect]
     Active Substance: TIAPRIDE HYDROCHLORIDE
     Indication: Tourette^s disorder
     Dosage: 100 MILLIGRAM, ONCE A DAY
     Route: 065

REACTIONS (13)
  - Oculogyric crisis [Recovered/Resolved]
  - Decreased activity [Recovered/Resolved]
  - Eye movement disorder [Recovered/Resolved]
  - Gaze palsy [Recovered/Resolved]
  - Somnolence [Recovered/Resolved]
  - Slow response to stimuli [Recovered/Resolved]
  - Posture abnormal [Recovered/Resolved]
  - Confusional state [Recovered/Resolved]
  - Joint hyperextension [Recovered/Resolved]
  - Drug level increased [Recovered/Resolved]
  - Drug interaction [Unknown]
  - Off label use [Unknown]
  - Self-destructive behaviour [Recovering/Resolving]
